FAERS Safety Report 19736047 (Version 1)
Quarter: 2021Q3

REPORT INFORMATION
  Report Type: Spontaneous
  Country: MX (occurrence: MX)
  Receive Date: 20210823
  Receipt Date: 20210823
  Transmission Date: 20211014
  Serious: Yes (Hospitalization)
  Sender: FDA-Public Use
  Company Number: MX-ELI_LILLY_AND_COMPANY-MX202108004773

PATIENT
  Age: 51 Year
  Sex: Male

DRUGS (3)
  1. RAMUCIRUMAB [Suspect]
     Active Substance: RAMUCIRUMAB
     Indication: ADENOCARCINOMA METASTATIC
     Dosage: UNK UNK, CYCLICAL (EVERY 21 DAYS)
     Route: 065
  2. FOLFOX [Concomitant]
     Active Substance: FLUOROURACIL\LEUCOVORIN CALCIUM\OXALIPLATIN
     Indication: ADENOCARCINOMA METASTATIC
     Dosage: UNK
  3. PACLITAXEL. [Suspect]
     Active Substance: PACLITAXEL
     Indication: ADENOCARCINOMA METASTATIC
     Dosage: UNK UNK, WEEKLY (1/W)
     Route: 065

REACTIONS (6)
  - Neuropathy peripheral [Unknown]
  - Alopecia [Unknown]
  - Carcinoembryonic antigen increased [Unknown]
  - Neutropenia [Unknown]
  - Ascites [Unknown]
  - Fatigue [Unknown]
